FAERS Safety Report 8721677 (Version 3)
Quarter: 2012Q4

REPORT INFORMATION
  Report Type: Spontaneous
  Country: US (occurrence: None)
  Receive Date: 20120727
  Receipt Date: 20120911
  Transmission Date: 20130627
  Serious: Yes (Disabling)
  Sender: FDA-Public Use
  Company Number: AUR-APL-2012-03143

PATIENT
  Age: 56 Year
  Sex: Male
  Weight: 88.89 kg

DRUGS (8)
  1. VENLAFAXINE [Suspect]
     Indication: DEPRESSION
     Dosage: (150 MG,3 IN 1 D)
     Route: 048
     Dates: start: 201205
  2. VENLAFAXINE [Suspect]
     Indication: ANXIETY
     Dosage: (150 MG,3 IN 1 D)
     Route: 048
     Dates: start: 201205
  3. SERTRALINE HYDROCHLORIDE [Suspect]
     Indication: DEPRESSION
     Dosage: (100 MG,2 IN 1 D)
     Route: 048
     Dates: start: 201205
  4. SERTRALINE HYDROCHLORIDE [Suspect]
     Indication: ANXIETY
     Dosage: (100 MG,2 IN 1 D)
     Route: 048
     Dates: start: 201205
  5. EFFEXOR XR [Suspect]
     Indication: DEPRESSION
     Dosage: (150 MG,3 IN 1 D)
     Dates: start: 1990, end: 201205
  6. ZOLOFT [Suspect]
     Indication: DEPRESSION
     Dates: end: 201205
  7. WELLBUTRIN XL [Concomitant]
  8. KLONOPIN [Concomitant]

REACTIONS (5)
  - Accident at work [None]
  - Back injury [None]
  - Product substitution issue [None]
  - No therapeutic response [None]
  - Product quality issue [None]
